FAERS Safety Report 8158224-6 (Version None)
Quarter: 2012Q1

REPORT INFORMATION
  Report Type: 
  Country: None (occurrence: None)
  Receive Date: 20120223
  Receipt Date: 20120214
  Transmission Date: 20120608
  Serious: Yes (Hospitalization)
  Sender: FDA-Public Use
  Company Number: AU-BRISTOL-MYERS SQUIBB COMPANY-16283392

PATIENT
  Age: 72 Year
  Sex: Female

DRUGS (2)
  1. ONGLYZA [Suspect]
     Route: 048
  2. METFORMIN HCL [Suspect]
     Dosage: ALSO TAKEN 2MG
     Route: 048

REACTIONS (2)
  - BLOOD GLUCOSE ABNORMAL [None]
  - PANCREATITIS [None]
